FAERS Safety Report 7203355-8 (Version None)
Quarter: 2010Q4

REPORT INFORMATION
  Report Type: 
  Country: None (occurrence: None)
  Receive Date: 20101215
  Receipt Date: 20101202
  Transmission Date: 20110411
  Serious: Yes (Other)
  Sender: FDA-Public Use
  Company Number: 2010SP063112

PATIENT
  Age: 26 Year
  Sex: Female
  Weight: 48 kg

DRUGS (2)
  1. IMPLANON [Suspect]
     Indication: CONTRACEPTION
     Dosage: SEE CONT PAGE
     Dates: start: 20040101, end: 20071109
  2. IMPLANON [Suspect]
     Indication: CONTRACEPTION
     Dosage: SEE CONT PAGE
     Dates: start: 20071109

REACTIONS (5)
  - DEVICE ISSUE [None]
  - HYPOTHYROIDISM [None]
  - LOSS OF LIBIDO [None]
  - STRESS AT WORK [None]
  - WEIGHT DECREASED [None]
